FAERS Safety Report 10451992 (Version 1)
Quarter: 2014Q3

REPORT INFORMATION
  Report Type: Spontaneous
  Country: US (occurrence: US)
  Receive Date: 20140915
  Receipt Date: 20140915
  Transmission Date: 20150326
  Serious: Yes (Other)
  Sender: FDA-Public Use
  Company Number: US-BRISTOL-MYERS SQUIBB COMPANY-21380936

PATIENT
  Age: 55 Year
  Sex: Female
  Weight: 86.17 kg

DRUGS (5)
  1. DURAGESIC [Concomitant]
     Active Substance: FENTANYL
  2. METOPROLOL [Concomitant]
     Active Substance: METOPROLOL
  3. ELIQUIS [Suspect]
     Active Substance: APIXABAN
     Indication: CEREBROVASCULAR ACCIDENT PROPHYLAXIS
  4. NORFLEX [Concomitant]
     Active Substance: ORPHENADRINE CITRATE
  5. METHAZOLAMIDE. [Concomitant]
     Active Substance: METHAZOLAMIDE

REACTIONS (1)
  - Nephrolithiasis [Unknown]
